FAERS Safety Report 9413604 (Version 1)
Quarter: 2013Q2

REPORT INFORMATION
  Report Type: Spontaneous
  Country: US (occurrence: None)
  Receive Date: 20130507
  Receipt Date: 20130507
  Transmission Date: 20140414
  Serious: Yes (Hospitalization, Other)
  Sender: FDA-Public Use
  Company Number: JPI-P-031054

PATIENT
  Age: 57 Year
  Sex: Female
  Weight: 66.68 kg

DRUGS (6)
  1. XYREM (500 MILLIGRAM/MILLILITERS, SOLUTION) (SODIUM OXYBATE) [Suspect]
     Indication: NARCOLEPSY
     Route: 048
     Dates: start: 201202
  2. XYREM (500 MILLIGRAM/MILLILITERS, SOLUTION) (SODIUM OXYBATE) [Suspect]
     Indication: SOMNOLENCE
     Route: 048
     Dates: start: 201202
  3. XYREM (500 MILLIGRAM/MILLILITERS, SOLUTION) (SODIUM OXYBATE) [Suspect]
     Route: 048
     Dates: start: 201202
  4. LEVOTHYROXINE SODIUM (UNKNOWN) [Concomitant]
  5. VILAZODONE HYDROCHLORIDE (UNKNOWN) [Concomitant]
  6. MS CONTIN (UNKNOWN) [Concomitant]

REACTIONS (4)
  - Pneumonia bacterial [None]
  - Diabetes mellitus [None]
  - Weight decreased [None]
  - Oxygen saturation decreased [None]
